FAERS Safety Report 11650666 (Version 3)
Quarter: 2016Q2

REPORT INFORMATION
  Report Type: Spontaneous
  Country: FR (occurrence: FR)
  Receive Date: 20151021
  Receipt Date: 20160623
  Transmission Date: 20160815
  Serious: Yes (Life-Threatening, Hospitalization, Other)
  Sender: FDA-Public Use
  Company Number: FR-ASTRAZENECA-2015SF00738

PATIENT
  Age: 16354 Day
  Sex: Male

DRUGS (9)
  1. INEXIUM [Suspect]
     Active Substance: ESOMEPRAZOLE
     Indication: GASTRIC ULCER
     Route: 048
     Dates: end: 20150914
  2. TRIFLUCAN [Suspect]
     Active Substance: FLUCONAZOLE
     Indication: SEPTIC SHOCK
     Route: 065
     Dates: start: 20150818, end: 20150914
  3. PERFALGAN [Concomitant]
     Active Substance: ACETAMINOPHEN
  4. ATROVENT [Concomitant]
     Active Substance: IPRATROPIUM BROMIDE
  5. TOPALGIC [Concomitant]
     Active Substance: TRAMADOL
  6. LOXEN [Concomitant]
     Active Substance: NICARDIPINE HYDROCHLORIDE
  7. CALCIPARINE [Concomitant]
     Active Substance: HEPARIN CALCIUM
  8. BRICANYL [Concomitant]
     Active Substance: TERBUTALINE SULFATE
  9. TAZOCILLINE [Suspect]
     Active Substance: PIPERACILLIN SODIUM\TAZOBACTAM SODIUM
     Indication: SEPTIC SHOCK
     Route: 042
     Dates: start: 20150818, end: 20150914

REACTIONS (9)
  - Gastric ulcer perforation [Unknown]
  - Anuria [Unknown]
  - Metabolic acidosis [Unknown]
  - Drug reaction with eosinophilia and systemic symptoms [Recovered/Resolved]
  - Septic shock [Unknown]
  - Peritonitis [Unknown]
  - Respiratory distress [Unknown]
  - Oesophageal rupture [Unknown]
  - Thrombocytosis [Unknown]

NARRATIVE: CASE EVENT DATE: 20150914
